FAERS Safety Report 15944216 (Version 2)
Quarter: 2019Q1

REPORT INFORMATION
  Report Type: Report from Study
  Country: RS (occurrence: RS)
  Receive Date: 20190211
  Receipt Date: 20190219
  Transmission Date: 20190417
  Serious: Yes (Other)
  Sender: FDA-Public Use
  Company Number: RS-ROCHE-2252455

PATIENT
  Age: 50 Year
  Sex: Male
  Weight: 94 kg

DRUGS (2)
  1. COBIMETINIB. [Suspect]
     Active Substance: COBIMETINIB
     Indication: MALIGNANT MELANOMA
     Dosage: ON 14/JAN/2019, HE RECEIVED THE MOST RECENT DOSE OF COBIMETINIB PRIOR TO SAE ONSET.
     Route: 048
     Dates: start: 20181225
  2. VEMURAFENIB. [Suspect]
     Active Substance: VEMURAFENIB
     Indication: MALIGNANT MELANOMA
     Dosage: ON 20/JAN/2019, HE RECEIVED THE MOST RECENT DOSE OF VEMURAFENIB PRIOR TO SAE ONSET.
     Route: 048
     Dates: start: 20181225

REACTIONS (2)
  - Rash maculo-papular [Recovering/Resolving]
  - Stevens-Johnson syndrome [Recovering/Resolving]

NARRATIVE: CASE EVENT DATE: 20190118
